FAERS Safety Report 7061629-8 (Version None)
Quarter: 2010Q4

REPORT INFORMATION
  Report Type: 
  Country: None (occurrence: None)
  Receive Date: 20101026
  Receipt Date: 20100622
  Transmission Date: 20110411
  Serious: No
  Sender: FDA-Public Use
  Company Number: US-ABBOTT-10P-163-0653888-00

PATIENT
  Age: 46 Year
  Sex: Female

DRUGS (1)
  1. LUPRON DEPOT [Suspect]
     Indication: ENDOMETRIOSIS
     Route: 030
     Dates: start: 20100101

REACTIONS (5)
  - HOT FLUSH [None]
  - INJECTION SITE SWELLING [None]
  - MENORRHAGIA [None]
  - METRORRHAGIA [None]
  - PAIN IN EXTREMITY [None]
